FAERS Safety Report 7329745-0 (Version None)
Quarter: 2011Q1

REPORT INFORMATION
  Report Type: 
  Country: None (occurrence: None)
  Receive Date: 20110223
  Receipt Date: 20110209
  Transmission Date: 20110831
  Serious: Yes (Death)
  Sender: FDA-Public Use
  Company Number: 2011S1000057

PATIENT
  Sex: Male

DRUGS (5)
  1. INOVENT (DELIVERY SYSTEM) (INOVENT (DELIVERY SYSTEM)) [Suspect]
  2. INOMAX [Suspect]
     Indication: PNEUMONIA
     Dosage: 20 PPM;CONT;INH,  18 PPM;CONT;INH
     Route: 055
     Dates: start: 20110205, end: 20110208
  3. INOMAX [Suspect]
     Indication: ACUTE RESPIRATORY DISTRESS SYNDROME
     Dosage: 20 PPM;CONT;INH,  18 PPM;CONT;INH
     Route: 055
     Dates: start: 20110205, end: 20110208
  4. INOMAX [Suspect]
     Indication: PNEUMONIA
     Dosage: 20 PPM;CONT;INH,  18 PPM;CONT;INH
     Route: 055
     Dates: start: 20110116, end: 20110125
  5. INOMAX [Suspect]
     Indication: ACUTE RESPIRATORY DISTRESS SYNDROME
     Dosage: 20 PPM;CONT;INH,  18 PPM;CONT;INH
     Route: 055
     Dates: start: 20110116, end: 20110125

REACTIONS (3)
  - DEVICE FAILURE [None]
  - OXYGEN SATURATION DECREASED [None]
  - CARDIAC ARREST [None]
